FAERS Safety Report 4547557-8 (Version None)
Quarter: 2004Q4

REPORT INFORMATION
  Report Type: 
  Country: None (occurrence: None)
  Receive Date: 20041227
  Receipt Date: 20041109
  Transmission Date: 20050328
  Serious: No
  Sender: FDA-Public Use
  Company Number: 04P-163-0280044-00

PATIENT
  Age: 70 Year
  Sex: Male
  Weight: 90.7194 kg

DRUGS (8)
  1. HUMIRA [Suspect]
     Indication: RHEUMATOID ARTHRITIS
     Dosage: 40 MG, 1 IN 2 WK, SUBCUTANEOUS
     Route: 058
     Dates: start: 20040801, end: 20041020
  2. PREDNISONE [Concomitant]
  3. METOPROLOL SUCCINATE [Concomitant]
  4. COLESEVELAM HYDROCHLORIDE [Concomitant]
  5. ATORVASTATIN [Concomitant]
  6. LANSOPRAZOLE [Concomitant]
  7. ENTERIC ASPIRIN [Concomitant]
  8. GLIMEPIRIDE [Concomitant]

REACTIONS (3)
  - PRURITUS [None]
  - RASH [None]
  - SINUSITIS [None]
